FAERS Safety Report 7850343-4 (Version None)
Quarter: 2011Q4

REPORT INFORMATION
  Report Type: 
  Country: None (occurrence: None)
  Receive Date: 20111021
  Receipt Date: 20111012
  Transmission Date: 20120403
  Serious: Yes (Other)
  Sender: FDA-Public Use
  Company Number: AUR-APL-2011-04843

PATIENT
  Age: 32 Year
  Sex: Female
  Weight: 80.3 kg

DRUGS (8)
  1. TOPIRAMATE [Suspect]
     Indication: PRODUCT USED FOR UNKNOWN INDICATION
     Dates: start: 20110725, end: 20110810
  2. LANSOPRAZOLE [Concomitant]
  3. PREGABALIN [Concomitant]
  4. ELETRIPTAN [Concomitant]
  5. YASMIN [Concomitant]
  6. ACETAMINOPHEN W/ CODEINE [Concomitant]
  7. DICLOFENAC SODIUM [Concomitant]
  8. GABAPENTIN [Concomitant]

REACTIONS (4)
  - CONSTIPATION [None]
  - VISUAL IMPAIRMENT [None]
  - ANGER [None]
  - FATIGUE [None]
